FAERS Safety Report 14869847 (Version 1)
Quarter: 2018Q2

REPORT INFORMATION
  Report Type: Other
  Country: FR (occurrence: FR)
  Receive Date: 20180509
  Receipt Date: 20180509
  Transmission Date: 20180711
  Serious: Yes (Other)
  Sender: FDA-Public Use
  Company Number: FR-APOTEX-2018AP012714

PATIENT
  Age: 22 Year
  Sex: Female

DRUGS (4)
  1. TOFRANIL [Suspect]
     Active Substance: IMIPRAMINE HYDROCHLORIDE
     Indication: DEPRESSION
     Dosage: 50 MG, UNK
     Route: 048
  2. PAROXETINE TABLET [Suspect]
     Active Substance: PAROXETINE
     Dosage: 40 MG, QD
     Route: 048
     Dates: end: 201704
  3. QUETIAPINE. [Suspect]
     Active Substance: QUETIAPINE
     Indication: INSOMNIA
     Dosage: 100 MG, UNK
     Route: 048
  4. SERESTA [Suspect]
     Active Substance: OXAZEPAM
     Indication: ANXIETY
     Dosage: 50 MG, UNK
     Route: 048

REACTIONS (1)
  - Anterograde amnesia [Not Recovered/Not Resolved]

NARRATIVE: CASE EVENT DATE: 2017
